FAERS Safety Report 13205175 (Version 2)
Quarter: 2017Q1

REPORT INFORMATION
  Report Type: Spontaneous
  Country: US (occurrence: US)
  Receive Date: 20170209
  Receipt Date: 20170324
  Transmission Date: 20170428
  Serious: Yes (Hospitalization)
  Sender: FDA-Public Use
  Company Number: US-PFIZER INC-2017058417

PATIENT
  Age: 60 Year
  Sex: Female
  Weight: 51 kg

DRUGS (15)
  1. VITAMIN D [Concomitant]
     Active Substance: CHOLECALCIFEROL
     Dosage: 5000 IU, 2X/DAY
  2. LYRICA [Suspect]
     Active Substance: PREGABALIN
     Indication: NEURALGIA
     Dosage: 150 IN AM 300 PM
     Route: 048
  3. TIZANIDINE. [Concomitant]
     Active Substance: TIZANIDINE
     Dosage: UNK
  4. HYDROCODONE [Concomitant]
     Active Substance: HYDROCODONE
     Dosage: 7.5 MG, THREE TIMES A DAY AS NEEDED
     Dates: start: 2008
  5. VITAMIN D [Concomitant]
     Active Substance: CHOLECALCIFEROL
     Dosage: UNK
  6. LYRICA [Suspect]
     Active Substance: PREGABALIN
     Indication: SPINAL FUSION SURGERY
     Dosage: 250 MG, 2X/DAY
     Route: 048
  7. FENTANYL. [Concomitant]
     Active Substance: FENTANYL
     Indication: PAIN
     Dosage: 75 MG, PATCH APPLIED EVERY 2 DAYS
     Route: 062
     Dates: start: 2008
  8. PREVACID [Concomitant]
     Active Substance: LANSOPRAZOLE
     Indication: GASTRIC DISORDER
     Dosage: 30 MG, 1X/DAY
  9. LYRICA [Suspect]
     Active Substance: PREGABALIN
     Indication: POST HERPETIC NEURALGIA
     Dosage: 300 MG, 2X/DAY
     Route: 048
     Dates: start: 2014
  10. TIZANIDINE. [Concomitant]
     Active Substance: TIZANIDINE
     Indication: MUSCLE SPASMS
     Dosage: 4 MG, AS NEEDED THREE TIMES
  11. TIZANIDINE. [Concomitant]
     Active Substance: TIZANIDINE
     Dosage: UNK, 1X/DAY AT NIGHT
  12. HYDROCODONE [Concomitant]
     Active Substance: HYDROCODONE
     Dosage: UNK
  13. VITAMIN D [Concomitant]
     Active Substance: CHOLECALCIFEROL
     Indication: VITAMIN D DEFICIENCY
     Dosage: 50000 IU, WEEKLY
     Dates: start: 201511
  14. LYRICA [Suspect]
     Active Substance: PREGABALIN
     Indication: NERVE INJURY
     Dosage: 250MG IN THE MORNING AND 300MG AT NIGHT
     Route: 048
  15. HYDROCODONE [Concomitant]
     Active Substance: HYDROCODONE
     Indication: BREAKTHROUGH PAIN
     Dosage: ONLY TOOK THIS ONCE OR TWICE A DAY

REACTIONS (9)
  - Weight decreased [Recovered/Resolved]
  - Pain [Unknown]
  - Vomiting [Unknown]
  - Hyperhidrosis [Unknown]
  - Pain [Not Recovered/Not Resolved]
  - Tremor [Unknown]
  - Palpitations [Unknown]
  - Withdrawal syndrome [Recovering/Resolving]
  - Diarrhoea [Unknown]

NARRATIVE: CASE EVENT DATE: 2015
